FAERS Safety Report 25276090 (Version 1)
Quarter: 2025Q2

REPORT INFORMATION
  Report Type: Spontaneous
  Country: US (occurrence: US)
  Receive Date: 20250507
  Receipt Date: 20250507
  Transmission Date: 20250716
  Serious: No
  Sender: ZYDUS PHARM
  Company Number: US-CADILA HEALTHCARE LIMITED-US-ZYDUS-122952

PATIENT

DRUGS (1)
  1. ENOXAPARIN SODIUM [Suspect]
     Active Substance: ENOXAPARIN SODIUM
     Indication: Prophylaxis
     Route: 058
     Dates: start: 20250311

REACTIONS (5)
  - Injection site bruising [Recovering/Resolving]
  - Wrong technique in product usage process [Recovered/Resolved]
  - Injection site pain [Recovering/Resolving]
  - Blood blister [Recovering/Resolving]
  - Injection site urticaria [Recovering/Resolving]

NARRATIVE: CASE EVENT DATE: 20250410
